FAERS Safety Report 8225210 (Version 3)
Quarter: 2012Q4

REPORT INFORMATION
  Report Type: Report from Study
  Country: US (occurrence: US)
  Receive Date: 20111103
  Receipt Date: 20121121
  Transmission Date: 20130627
  Serious: Yes (Hospitalization)
  Sender: FDA-Public Use
  Company Number: US-JNJFOC-20111012187

PATIENT
  Age: 18 Year
  Sex: Female
  Weight: 51.6 kg

DRUGS (20)
  1. INFLIXIMAB, RECOMBINANT [Suspect]
     Indication: INFLAMMATORY BOWEL DISEASE
     Route: 042
     Dates: start: 20090804, end: 20091022
  2. FOLIC ACID [Concomitant]
  3. 5-ASA [Concomitant]
  4. PROBIOTICS [Concomitant]
  5. LOPERAMIDE [Concomitant]
  6. ZOFRAN [Concomitant]
  7. TORADOL [Concomitant]
  8. FENTANYL [Concomitant]
  9. VALIUM [Concomitant]
  10. MAGNESIUM [Concomitant]
  11. BUDESONIDE [Concomitant]
  12. TACROLIMUS [Concomitant]
  13. DICYCLOMINE [Concomitant]
  14. COLACE [Concomitant]
  15. ACETAMINOPHEN [Concomitant]
  16. CITALOPRAM [Concomitant]
  17. DILAUDID [Concomitant]
  18. IBUPROFEN [Concomitant]
  19. OXYCODONE [Concomitant]
  20. CEFOXITIN [Concomitant]

REACTIONS (1)
  - Small intestinal obstruction [Recovered/Resolved]
